FAERS Safety Report 10361749 (Version 1)
Quarter: 2014Q3

REPORT INFORMATION
  Report Type: Spontaneous
  Country: GB (occurrence: GB)
  Receive Date: 20140805
  Receipt Date: 20140805
  Transmission Date: 20150326
  Serious: Yes (Hospitalization)
  Sender: FDA-Public Use
  Company Number: GB-BRISTOL-MYERS SQUIBB COMPANY-21240064

PATIENT
  Age: 31 Year
  Sex: Male

DRUGS (7)
  1. SERTRALINE [Concomitant]
     Active Substance: SERTRALINE HYDROCHLORIDE
     Indication: DEPRESSION
     Dates: start: 20130908
  2. AMISULPRIDE [Concomitant]
     Active Substance: AMISULPRIDE
     Dates: start: 20140423, end: 201406
  3. CHOLECALCIFEROL [Concomitant]
     Active Substance: CHOLECALCIFEROL
     Indication: VITAMIN D DEFICIENCY
     Dates: start: 20140502
  4. LAMOTRIGINE. [Concomitant]
     Active Substance: LAMOTRIGINE
     Dates: start: 20140529, end: 201406
  5. KWELL [Concomitant]
     Active Substance: LINDANE
     Indication: SALIVARY HYPERSECRETION
     Dates: start: 20140610
  6. PRAVASTATIN SODIUM. [Suspect]
     Active Substance: PRAVASTATIN SODIUM
     Indication: HYPERLIPIDAEMIA
     Route: 048
     Dates: start: 20130727
  7. ZAPONEX [Suspect]
     Active Substance: CLOZAPINE
     Dosage: JUN14-JUL14?12APR13-JUN14:500MG
     Route: 048
     Dates: start: 20130312, end: 20130409

REACTIONS (11)
  - Malaise [Unknown]
  - White blood cell count increased [Not Recovered/Not Resolved]
  - Renal failure [Recovering/Resolving]
  - Hyperhidrosis [Unknown]
  - Platelet count decreased [Recovered/Resolved]
  - Platelet count increased [Not Recovered/Not Resolved]
  - Schizophrenia [Unknown]
  - Neutrophil count increased [Not Recovered/Not Resolved]
  - Rhabdomyolysis [Unknown]
  - Blood creatine phosphokinase increased [Recovering/Resolving]
  - Neuroleptic malignant syndrome [Unknown]

NARRATIVE: CASE EVENT DATE: 201406
